FAERS Safety Report 9218926 (Version 1)
Quarter: 2013Q2

REPORT INFORMATION
  Report Type: Spontaneous
  Country: US (occurrence: None)
  Receive Date: 20130405
  Receipt Date: 20130405
  Transmission Date: 20140414
  Serious: No
  Sender: FDA-Public Use
  Company Number: None

PATIENT
  Age: 73 Year
  Sex: Male
  Weight: 56.25 kg

DRUGS (2)
  1. COREG [Suspect]
     Dosage: 3.125 BID
     Dates: start: 20130221
  2. COREG [Suspect]
     Dosage: 3.125 BID
     Dates: start: 20130221

REACTIONS (2)
  - Cardiac flutter [None]
  - Product substitution issue [None]
